FAERS Safety Report 5533425-1 (Version None)
Quarter: 2007Q4

REPORT INFORMATION
  Report Type: 
  Country: None (occurrence: None)
  Receive Date: 20071204
  Receipt Date: 20071130
  Transmission Date: 20080405
  Serious: Yes (Death)
  Sender: FDA-Public Use
  Company Number: PHHO2007VE11664

PATIENT
  Age: 40 Year
  Sex: Male
  Weight: 66.5 kg

DRUGS (1)
  1. SANDOSTATIN LAR [Suspect]
     Indication: NEUROENDOCRINE TUMOUR
     Route: 030
     Dates: start: 20070109, end: 20070625

REACTIONS (1)
  - HYPOGLYCAEMIA [None]
